FAERS Safety Report 8208960-8 (Version None)
Quarter: 2012Q1

REPORT INFORMATION
  Report Type: 
  Country: None (occurrence: None)
  Receive Date: 20120314
  Receipt Date: 20120308
  Transmission Date: 20120608
  Serious: Yes (Death)
  Sender: FDA-Public Use
  Company Number: GB-ROCHE-1048227

PATIENT

DRUGS (3)
  1. LUCENTIS [Suspect]
     Dosage: IN RIGHT EYE
     Route: 050
  2. LUCENTIS [Suspect]
     Indication: PRODUCT USED FOR UNKNOWN INDICATION
     Dosage: IN RIGHT EYE
     Route: 050
  3. LUCENTIS [Suspect]
     Dosage: IN RIGHT EYE
     Route: 050

REACTIONS (1)
  - DEATH [None]
